FAERS Safety Report 21984334 (Version 2)
Quarter: 2023Q1

REPORT INFORMATION
  Report Type: Spontaneous
  Country: US (occurrence: US)
  Receive Date: 20230213
  Receipt Date: 20230215
  Transmission Date: 20230418
  Serious: No
  Sender: FDA-Public Use
  Company Number: US-002147023-NVSC2023US030301

PATIENT
  Sex: Female

DRUGS (4)
  1. VIVELLE-DOT [Suspect]
     Active Substance: ESTRADIOL
     Indication: Product used for unknown indication
     Dosage: UNK
     Route: 065
     Dates: start: 1996
  2. VIVELLE-DOT [Suspect]
     Active Substance: ESTRADIOL
     Dosage: 0.075 MG/DAY
     Route: 065
  3. VIVELLE-DOT [Suspect]
     Active Substance: ESTRADIOL
     Dosage: 0.025 MG/DAY
     Route: 065
  4. VIVELLE-DOT [Suspect]
     Active Substance: ESTRADIOL
     Dosage: WEDNESDAY AND SATURDAY
     Route: 065

REACTIONS (8)
  - Hypertension [Recovered/Resolved]
  - Migraine [Recovering/Resolving]
  - Fall [Unknown]
  - Crying [Recovered/Resolved]
  - Hot flush [Recovered/Resolved]
  - Withdrawal syndrome [Recovered/Resolved]
  - Product adhesion issue [Unknown]
  - Wrong technique in product usage process [Unknown]
